FAERS Safety Report 4890630-5 (Version None)
Quarter: 2006Q1

REPORT INFORMATION
  Report Type: 
  Country: None (occurrence: None)
  Receive Date: 20060123
  Receipt Date: 20060104
  Transmission Date: 20060701
  Serious: Yes (Hospitalization)
  Sender: FDA-Public Use
  Company Number: US200601000642

PATIENT
  Age: 68 Year
  Sex: Female

DRUGS (13)
  1. HUMULIN N [Suspect]
     Indication: DIABETES MELLITUS
     Dosage: SEE IMAGE
     Dates: start: 19960101
  2. HUMULIN N [Suspect]
     Indication: DIABETES MELLITUS
     Dosage: SEE IMAGE
     Dates: start: 19960101
  3. HUMULIN R [Suspect]
     Indication: DIABETES MELLITUS
     Dosage: AS NEEDED,
     Dates: start: 20030101
  4. NORVASC /DEN/ (AMLODIPINE BESILATE) [Concomitant]
  5. PRINIVIL [Concomitant]
  6. LANOXIN [Concomitant]
  7. CARDURA [Concomitant]
  8. ZOCOR [Concomitant]
  9. PLAVIX [Concomitant]
  10. DARVOCET-N (PROPOXYPHENE NAPSYLATE) CAPSULE [Concomitant]
  11. BUSPAR /AUS/ (BUSPIRONE HYDROCHLORIDE) [Concomitant]
  12. NEURONTIN [Concomitant]
  13. PEPCID [Concomitant]

REACTIONS (4)
  - ARTERIAL OCCLUSIVE DISEASE [None]
  - BLOOD CHOLESTEROL INCREASED [None]
  - BLOOD GLUCOSE INCREASED [None]
  - CARDIAC PACEMAKER INSERTION [None]
